FAERS Safety Report 16635813 (Version 1)
Quarter: 2019Q3

REPORT INFORMATION
  Report Type: Spontaneous
  Country: US (occurrence: US)
  Receive Date: 20190725
  Receipt Date: 20190725
  Transmission Date: 20191004
  Serious: No
  Sender: FDA-Public Use
  Company Number: None

PATIENT
  Sex: Female

DRUGS (14)
  1. HCG [Concomitant]
     Active Substance: GONADOTROPHIN, CHORIONIC
  2. METHYLPREDNISOLON [Concomitant]
     Active Substance: METHYLPREDNISOLONE
  3. ESTRADIOL. [Concomitant]
     Active Substance: ESTRADIOL
  4. LETROZOLE. [Concomitant]
     Active Substance: LETROZOLE
  5. FOLLISTIM [Suspect]
     Active Substance: FOLLITROPIN
     Indication: INFERTILITY FEMALE
     Dosage: ?          OTHER FREQUENCY:FOR 10 TO 14 DAYS;?
     Route: 058
     Dates: start: 20180207
  6. PROGESTERONE. [Concomitant]
     Active Substance: PROGESTERONE
  7. AZITHROMYCIN ANHYDROUS. [Concomitant]
     Active Substance: AZITHROMYCIN ANHYDROUS
  8. ENDOMETRIN [Concomitant]
     Active Substance: PROGESTERONE
  9. HYDROCODONE [Concomitant]
     Active Substance: HYDROCODONE
  10. LEUPROLIDE [Concomitant]
     Active Substance: LEUPROLIDE
  11. NOVAREL [Concomitant]
     Active Substance: CHORIOGONADOTROPIN ALFA
  12. GANIRELIX [Suspect]
     Active Substance: GANIRELIX
     Indication: INFERTILITY FEMALE
     Route: 058
     Dates: start: 20180414
  13. MENOPUR [Concomitant]
     Active Substance: FOLLITROPIN\LUTEINIZING HORMONE
  14. OVIDREL [Concomitant]
     Active Substance: CHORIOGONADOTROPIN ALFA

REACTIONS (1)
  - Contusion [None]
